FAERS Safety Report 23866359 (Version 3)
Quarter: 2025Q1

REPORT INFORMATION
  Report Type: Spontaneous
  Country: FR (occurrence: FR)
  Receive Date: 20240517
  Receipt Date: 20250122
  Transmission Date: 20250409
  Serious: Yes (Hospitalization)
  Sender: ACCORD
  Company Number: None

PATIENT
  Age: 65 Year
  Sex: Male
  Weight: 98 kg

DRUGS (14)
  1. BORTEZOMIB [Suspect]
     Active Substance: BORTEZOMIB
     Indication: Plasma cell myeloma
     Dates: start: 20240115, end: 20240415
  2. LENALIDOMIDE [Suspect]
     Active Substance: LENALIDOMIDE
     Indication: Plasma cell myeloma
     Dates: start: 20240115, end: 20240417
  3. VALACYCLOVIR HYDROCHLORIDE [Suspect]
     Active Substance: VALACYCLOVIR HYDROCHLORIDE
     Indication: Opportunistic infection prophylaxis
     Dates: start: 20240115, end: 20240517
  4. BACTRIM [Concomitant]
     Active Substance: SULFAMETHOXAZOLE\TRIMETHOPRIM
     Dates: start: 20240115, end: 20240321
  5. DEXAMETHASONE [Concomitant]
     Active Substance: DEXAMETHASONE
     Dates: start: 20240115, end: 20240408
  6. ARANESP [Concomitant]
     Active Substance: DARBEPOETIN ALFA
     Dates: start: 20240314, end: 20240412
  7. ELIQUIS [Concomitant]
     Active Substance: APIXABAN
     Dates: start: 20240115, end: 20240408
  8. DARATUMUMAB [Concomitant]
     Active Substance: DARATUMUMAB
     Dates: start: 20240115, end: 20240408
  9. BISOPROLOL [Concomitant]
     Active Substance: BISOPROLOL
  10. AMOXICILLIN [Concomitant]
     Active Substance: AMOXICILLIN
  11. FUROSEMIDE [Concomitant]
     Active Substance: FUROSEMIDE
  12. FOLIC ACID [Concomitant]
     Active Substance: FOLIC ACID
  13. PREDNISONE [Concomitant]
     Active Substance: PREDNISONE
  14. VIREAD [Concomitant]
     Active Substance: TENOFOVIR DISOPROXIL FUMARATE

REACTIONS (1)
  - Drug reaction with eosinophilia and systemic symptoms [Recovered/Resolved]

NARRATIVE: CASE EVENT DATE: 20240319
